FAERS Safety Report 13194260 (Version 2)
Quarter: 2019Q2

REPORT INFORMATION
  Report Type: Spontaneous
  Country: US (occurrence: US)
  Receive Date: 20170207
  Receipt Date: 20190522
  Transmission Date: 20190711
  Serious: No
  Sender: FDA-Public Use
  Company Number: US-JAZZ-2016-US-022965

PATIENT
  Sex: Female

DRUGS (20)
  1. POTASSIUM CHLORIDE. [Concomitant]
     Active Substance: POTASSIUM CHLORIDE
  2. BELSOMRA [Concomitant]
     Active Substance: SUVOREXANT
  3. CLONAZEPAM CEVALLOS [Concomitant]
  4. XYREM [Suspect]
     Active Substance: SODIUM OXYBATE
     Indication: NARCOLEPSY
     Dosage: 3 G, BID
     Route: 048
     Dates: start: 201309, end: 2013
  5. EFFEXOR XR [Concomitant]
     Active Substance: VENLAFAXINE HYDROCHLORIDE
  6. ENJUVIA [Concomitant]
     Active Substance: ESTROGENS, CONJUGATED SYNTHETIC B
  7. METHADONE HCL [Concomitant]
     Active Substance: METHADONE HYDROCHLORIDE
  8. PROPRANOLOL                        /00030002/ [Concomitant]
     Active Substance: PROPRANOLOL HYDROCHLORIDE
  9. FIORICET WITH CODEINE [Concomitant]
     Active Substance: ACETAMINOPHEN\BUTALBITAL\CAFFEINE\CODEINE PHOSPHATE
  10. ESTRACE [Concomitant]
     Active Substance: ESTRADIOL
  11. XYREM [Suspect]
     Active Substance: SODIUM OXYBATE
     Indication: CATAPLEXY
     Dosage: 4.5 G, BID
     Route: 048
     Dates: start: 201311
  12. HYDROCORTISONE. [Concomitant]
     Active Substance: HYDROCORTISONE
  13. OXYCODONE HCL ARISTO [Concomitant]
  14. TOPAMAX [Concomitant]
     Active Substance: TOPIRAMATE
  15. LEVAQUIN [Concomitant]
     Active Substance: LEVOFLOXACIN
  16. GUAIFENESIN. [Concomitant]
     Active Substance: GUAIFENESIN
  17. CLONIDINE HCL [Concomitant]
     Active Substance: CLONIDINE HYDROCHLORIDE
  18. ZIOPTAN [Concomitant]
     Active Substance: TAFLUPROST
  19. ROBAXIN-750 [Concomitant]
     Dosage: UNK
  20. ACETYLSALICYLIC ACID [Concomitant]
     Active Substance: ASPIRIN

REACTIONS (4)
  - Pre-existing condition improved [Unknown]
  - Hallucination [Recovering/Resolving]
  - Drug ineffective [Unknown]
  - Hypersomnia [Recovering/Resolving]
